FAERS Safety Report 6668661-4 (Version None)
Quarter: 2010Q2

REPORT INFORMATION
  Report Type: 
  Country: None (occurrence: None)
  Receive Date: 20100401
  Receipt Date: 20100318
  Transmission Date: 20101027
  Serious: Yes (Death, Life-Threatening, Hospitalization, Disabling)
  Sender: FDA-Public Use
  Company Number: 2010AL001820

PATIENT
  Age: 63 Year
  Sex: Male

DRUGS (6)
  1. FLUOXETINE HCL [Suspect]
     Indication: DEPRESSION
     Dosage: 60 MG;QD;PO
     Route: 048
  2. CHLORPROMAZINE HYDROCHLORIDE [Concomitant]
     Indication: DEPRESSION
     Dosage: 50 MG;TID;PO
     Route: 048
  3. MIRTAZAPINE [Concomitant]
  4. NAPROXEN [Concomitant]
  5. ACETAMINOPHEN AND CODEINE PHOSPHATE [Concomitant]
  6. ACETYLSALICYLIC ACID [Concomitant]

REACTIONS (3)
  - ALVEOLITIS ALLERGIC [None]
  - GENERAL PHYSICAL HEALTH DETERIORATION [None]
  - NO THERAPEUTIC RESPONSE [None]
